FAERS Safety Report 8413791-X (Version None)
Quarter: 2012Q2

REPORT INFORMATION
  Report Type: 
  Country: None (occurrence: None)
  Receive Date: 20120605
  Receipt Date: 20120529
  Transmission Date: 20120825
  Serious: Yes (Hospitalization, Other)
  Sender: FDA-Public Use
  Company Number: GB-B.I. PHARMACEUTICALS,INC./RIDGEFIELD-2012-UK-00611UK

PATIENT
  Age: 38 Year
  Sex: Female

DRUGS (5)
  1. KYVEXA [Suspect]
     Indication: HIV INFECTION
     Dosage: 1 ANZ
     Route: 048
     Dates: start: 20091001, end: 20120428
  2. VIRAMUNE [Suspect]
     Indication: HIV INFECTION
     Dosage: 400 MG
     Route: 048
     Dates: start: 20111115, end: 20120428
  3. FOLIC ACID [Concomitant]
     Indication: PREGNANCY
  4. IRON [Concomitant]
     Indication: ANAEMIA
     Dosage: TAKEN 'ON/OFF'
  5. CALCEOS [Concomitant]
     Indication: VITAMIN D DEFICIENCY

REACTIONS (2)
  - ANAEMIA HAEMOLYTIC AUTOIMMUNE [None]
  - MATERNAL EXPOSURE DURING PREGNANCY [None]
